FAERS Safety Report 19361033 (Version 1)
Quarter: 2021Q2

REPORT INFORMATION
  Report Type: Spontaneous
  Country: GB (occurrence: GB)
  Receive Date: 20210602
  Receipt Date: 20210602
  Transmission Date: 20210717
  Serious: Yes (Other)
  Sender: FDA-Public Use
  Company Number: GB-ROCHE-2842104

PATIENT
  Age: 48 Year
  Sex: Female

DRUGS (1)
  1. OCRELIZUMAB. [Suspect]
     Active Substance: OCRELIZUMAB
     Indication: ILL-DEFINED DISORDER
     Route: 042
     Dates: start: 20201014, end: 20201028

REACTIONS (1)
  - Breast cancer female [Unknown]
